FAERS Safety Report 8555359-0 (Version None)
Quarter: 2012Q3

REPORT INFORMATION
  Report Type: 
  Country: None (occurrence: None)
  Receive Date: 20120731
  Receipt Date: 20120124
  Transmission Date: 20120928
  Serious: No
  Sender: FDA-Public Use
  Company Number: US-ASTRAZENECA-2011SE34362

PATIENT
  Age: 42 Year
  Sex: Female

DRUGS (5)
  1. XANAX [Concomitant]
  2. PRISIC [Concomitant]
  3. SEROQUEL [Suspect]
     Indication: MOOD SWINGS
     Route: 048
     Dates: start: 20100901
  4. PAREGORIC [Concomitant]
     Indication: GASTRIC DISORDER
  5. HYDROCODONE [Concomitant]
     Indication: BACK DISORDER

REACTIONS (11)
  - MALAISE [None]
  - MOOD SWINGS [None]
  - PSYCHOTIC DISORDER [None]
  - TOOTH ABSCESS [None]
  - NERVOUSNESS [None]
  - AGGRESSION [None]
  - INSOMNIA [None]
  - DRUG DOSE OMISSION [None]
  - OFF LABEL USE [None]
  - MENTAL DISORDER [None]
  - AMNESIA [None]
